FAERS Safety Report 5212856-3 (Version None)
Quarter: 2007Q1

REPORT INFORMATION
  Report Type: 
  Country: None (occurrence: None)
  Receive Date: 20070119
  Receipt Date: 20070109
  Transmission Date: 20070707
  Serious: Yes (Death, Hospitalization, Other)
  Sender: FDA-Public Use
  Company Number: FR-JNJFOC-20061205783

PATIENT
  Age: 50 Year
  Sex: Male

DRUGS (4)
  1. RISPERDAL CONSTA [Suspect]
     Indication: PSYCHOTIC DISORDER
     Route: 030
  2. TEGRETOL [Concomitant]
  3. URBANYL [Concomitant]
  4. LEPTICUR [Concomitant]

REACTIONS (2)
  - CERVICAL MYELOPATHY [None]
  - TARDIVE DYSKINESIA [None]
